FAERS Safety Report 11211268 (Version 1)
Quarter: 2015Q2

REPORT INFORMATION
  Report Type: Spontaneous
  Country: US (occurrence: None)
  Receive Date: 20150619
  Receipt Date: 20150619
  Transmission Date: 20150821
  Serious: Yes (Life-Threatening)
  Sender: FDA-Public Use
  Company Number: None

PATIENT
  Age: 93 Year
  Sex: Female
  Weight: 74.4 kg

DRUGS (14)
  1. CA+VITD3 [Concomitant]
  2. FERROUS SULFATE [Concomitant]
     Active Substance: FERROUS SULFATE\FERROUS SULFATE, DRIED
  3. IMDUR [Concomitant]
     Active Substance: ISOSORBIDE MONONITRATE
  4. TOPROL XL [Concomitant]
     Active Substance: METOPROLOL SUCCINATE
  5. BACLOFEN. [Suspect]
     Active Substance: BACLOFEN
     Indication: MUSCLE SPASMS
     Route: 048
  6. FOLVITE [Concomitant]
     Active Substance: FOLIC ACID
  7. PRINIVIL [Concomitant]
     Active Substance: LISINOPRIL
  8. BACLOFEN. [Suspect]
     Active Substance: BACLOFEN
     Indication: ARTHRALGIA
     Route: 048
  9. ASA [Concomitant]
     Active Substance: ASPIRIN
  10. CHOLECALCIFEROL [Concomitant]
     Active Substance: CHOLECALCIFEROL
  11. BACLOFEN. [Suspect]
     Active Substance: BACLOFEN
     Indication: PAIN IN EXTREMITY
     Route: 048
  12. LEVOTHROID [Concomitant]
     Active Substance: LEVOTHYROXINE SODIUM
  13. LIPITOR [Concomitant]
     Active Substance: ATORVASTATIN CALCIUM
  14. NEURONTIN [Concomitant]
     Active Substance: GABAPENTIN

REACTIONS (1)
  - Mental status changes [None]

NARRATIVE: CASE EVENT DATE: 20130126
